FAERS Safety Report 16121323 (Version 1)
Quarter: 2019Q1

REPORT INFORMATION
  Report Type: Spontaneous
  Country: DE (occurrence: DE)
  Receive Date: 20190327
  Receipt Date: 20190327
  Transmission Date: 20190418
  Serious: Yes (Other)
  Sender: FDA-Public Use
  Company Number: DE-TEVA-2019-DE-1028971

PATIENT
  Age: 58 Year
  Sex: Female
  Weight: 86 kg

DRUGS (3)
  1. PANTOPRAZOL PUREN 20 MG MAGENSAFTRESISTENTE TABLETTEN [Suspect]
     Active Substance: PANTOPRAZOLE SODIUM
     Dosage: JANUARY 2019 1 X EARLY + 1 X EVENING/FEBRUARY 2019 1 X EARLY
     Route: 048
     Dates: start: 20190114, end: 20190228
  2. HYGROTON [Suspect]
     Active Substance: CHLORTHALIDONE
     Indication: HYPERTENSION
     Dosage: 25 MG
     Route: 048
     Dates: start: 20181223, end: 20190224
  3. SPIRONOLACTON-RATIOPHARM 50 MG TABLETTEN [Suspect]
     Active Substance: SPIRONOLACTONE
     Indication: HYPERTENSION
     Route: 048
     Dates: start: 20181223, end: 20190224

REACTIONS (22)
  - Gastrointestinal mucosal disorder [Recovered/Resolved with Sequelae]
  - Renal impairment [Unknown]
  - Arrhythmia [Recovered/Resolved with Sequelae]
  - Gastrointestinal pain [Unknown]
  - Blood urea increased [Recovered/Resolved with Sequelae]
  - Palpitations [Unknown]
  - Sleep disorder [Unknown]
  - Tongue coated [Unknown]
  - Abdominal discomfort [Unknown]
  - Hyperchlorhydria [Recovered/Resolved with Sequelae]
  - Pain of skin [Unknown]
  - Hepatic function abnormal [Unknown]
  - Bone pain [Recovered/Resolved with Sequelae]
  - Arthralgia [Recovered/Resolved with Sequelae]
  - Malaise [Unknown]
  - Gastritis [Unknown]
  - Dizziness [Recovered/Resolved with Sequelae]
  - Swollen tongue [Unknown]
  - Breath odour [Unknown]
  - Dizziness [Unknown]
  - Blood uric acid increased [Unknown]
  - Alopecia [Recovered/Resolved with Sequelae]

NARRATIVE: CASE EVENT DATE: 20190108
